FAERS Safety Report 5647040-2 (Version None)
Quarter: 2008Q1

REPORT INFORMATION
  Report Type: 
  Country: None (occurrence: None)
  Receive Date: 20080131
  Receipt Date: 20071106
  Transmission Date: 20080703
  Serious: Yes (Hospitalization)
  Sender: FDA-Public Use
  Company Number: 163-21880-07100830

PATIENT
  Age: 72 Year
  Sex: Male

DRUGS (2)
  1. REVLIMID [Suspect]
     Indication: MULTIPLE MYELOMA
     Dosage: DAILY FOR 21 DAYS, ORAL
     Route: 048
     Dates: start: 20070912
  2. ERYTHROPOETIN (EPOETIN ALFA) [Concomitant]

REACTIONS (2)
  - FATIGUE [None]
  - PNEUMONIA [None]
